FAERS Safety Report 4853344-3 (Version None)
Quarter: 2005Q4

REPORT INFORMATION
  Report Type: 
  Country: None (occurrence: None)
  Receive Date: 20051212
  Receipt Date: 20051202
  Transmission Date: 20060501
  Serious: Yes (Hospitalization)
  Sender: FDA-Public Use
  Company Number: 2005153460

PATIENT
  Age: 62 Year
  Sex: Female
  Weight: 63 kg

DRUGS (13)
  1. HALCION [Suspect]
     Indication: SLEEP DISORDER
     Dosage: 0.25 MG (1 IN 1 D),
  2. VALTREX [Suspect]
     Indication: HERPES SIMPLEX
     Dosage: 3000 MG (500 MG, 3 IN 1 D), ORAL
     Route: 048
     Dates: start: 20050921, end: 20050922
  3. TIZANIDINE HCL [Suspect]
     Indication: MUSCLE SPASMS
     Dosage: 6 MG (6 MG, 1 IN 1 D), ORAL
     Route: 048
  4. ALLOPURINOL [Suspect]
     Indication: HYPERURICAEMIA
     Dosage: 100 MG (100 MG, 1 IN1 D), ORAL
     Route: 048
  5. PANTOPRAZOL (PANTOPRAZOLE) [Suspect]
     Indication: GASTRIC ULCER
     Dosage: 40 MG (40 MG, 1 IN 1 D), ORAL
     Route: 048
  6. EVISTA [Concomitant]
  7. CAL-D-VITA (CALCIUM CARBONATE,  COLECALCIFEROL) [Concomitant]
  8. NEURONTIN [Concomitant]
  9. TRAZODONE HCL [Concomitant]
  10. DEQUONAL (BENZALKONIUM CHLORIDE, DEQUALINIUM CHLORIDE) [Concomitant]
  11. ZOVIRAX [Concomitant]
  12. HYDROXYPROPYL METHYLCELLULOSE (HYPROMELLOSE) [Concomitant]
  13. MELPHALAN (MELPHALAN) [Concomitant]

REACTIONS (3)
  - C-REACTIVE PROTEIN INCREASED [None]
  - DRUG ERUPTION [None]
  - PAIN [None]
